FAERS Safety Report 23480013 (Version 3)
Quarter: 2025Q1

REPORT INFORMATION
  Report Type: Spontaneous
  Country: US (occurrence: US)
  Receive Date: 20240205
  Receipt Date: 20250227
  Transmission Date: 20250409
  Serious: No
  Sender: UCB
  Company Number: US-UCBSA-2023048969

PATIENT
  Age: 38 Year
  Sex: Male

DRUGS (6)
  1. MIDAZOLAM [Suspect]
     Active Substance: MIDAZOLAM
     Indication: Seizure
  2. LEVETIRACETAM [Suspect]
     Active Substance: LEVETIRACETAM
     Indication: Seizure
  3. NARCAN [Concomitant]
     Active Substance: NALOXONE HYDROCHLORIDE
     Indication: Product used for unknown indication
  4. EPINEPHRINE [Concomitant]
     Active Substance: EPINEPHRINE
     Indication: Product used for unknown indication
  5. ATROPINE [Concomitant]
     Active Substance: ATROPINE
     Indication: Product used for unknown indication
  6. PRALIDOXIME [Concomitant]
     Active Substance: PRALIDOXIME
     Indication: Product used for unknown indication

REACTIONS (1)
  - Drug ineffective [Unknown]
